FAERS Safety Report 16244526 (Version 3)
Quarter: 2019Q2

REPORT INFORMATION
  Report Type: Spontaneous
  Country: US (occurrence: US)
  Receive Date: 20190426
  Receipt Date: 20190515
  Transmission Date: 20190711
  Serious: Yes (Death)
  Sender: FDA-Public Use
  Company Number: US-JNJFOC-20190433213

PATIENT
  Age: 65 Year
  Sex: Female
  Weight: 65.9 kg

DRUGS (10)
  1. INFLIXIMAB RECOMBINANT [Suspect]
     Active Substance: INFLIXIMAB
     Indication: PROPHYLAXIS AGAINST GRAFT VERSUS HOST DISEASE
     Route: 042
     Dates: start: 20190219
  2. ONDANSETRON [Concomitant]
     Active Substance: ONDANSETRON
     Route: 065
     Dates: start: 20190110
  3. METHYLPREDNISOLONE. [Suspect]
     Active Substance: METHYLPREDNISOLONE
     Indication: ACUTE GRAFT VERSUS HOST DISEASE
     Route: 042
     Dates: start: 20190202, end: 20190217
  4. MAGNESIUM SULFATE. [Concomitant]
     Active Substance: MAGNESIUM SULFATE
     Route: 065
     Dates: start: 20181130
  5. METHYLPREDNISOLONE. [Suspect]
     Active Substance: METHYLPREDNISOLONE
     Indication: ACUTE GRAFT VERSUS HOST DISEASE
     Route: 042
     Dates: start: 20190217
  6. VASOPRESSIN. [Concomitant]
     Active Substance: VASOPRESSIN
     Route: 042
  7. METHYLPREDNISOLONE. [Suspect]
     Active Substance: METHYLPREDNISOLONE
     Indication: ACUTE GRAFT VERSUS HOST DISEASE
     Route: 042
     Dates: start: 20190225
  8. LEVOFLOXACIN. [Concomitant]
     Active Substance: LEVOFLOXACIN
     Route: 065
  9. ALBUMIN HUMAN [Concomitant]
     Active Substance: ALBUMIN HUMAN
     Route: 065
     Dates: start: 20190206
  10. ENOXAPARIN [Concomitant]
     Active Substance: ENOXAPARIN
     Route: 065
     Dates: start: 20190102, end: 20190221

REACTIONS (7)
  - Fatigue [Unknown]
  - Gastrointestinal haemorrhage [Fatal]
  - Atrial fibrillation [Unknown]
  - Septic shock [Fatal]
  - Acute respiratory failure [Unknown]
  - Pulmonary oedema [Unknown]
  - Asthenia [Unknown]

NARRATIVE: CASE EVENT DATE: 20190222
